FAERS Safety Report 7403693-X (Version None)
Quarter: 2011Q2

REPORT INFORMATION
  Report Type: 
  Country: None (occurrence: None)
  Receive Date: 20110408
  Receipt Date: 20110330
  Transmission Date: 20111010
  Serious: No
  Sender: FDA-Public Use
  Company Number: PHHY2011US11717

PATIENT
  Sex: Female
  Weight: 59.864 kg

DRUGS (1)
  1. GILENYA [Suspect]
     Indication: MULTIPLE SCLEROSIS
     Dosage: 0.5 MG, QD
     Route: 048
     Dates: start: 20070101

REACTIONS (2)
  - CONCOMITANT DISEASE PROGRESSION [None]
  - FATIGUE [None]
